FAERS Safety Report 19477039 (Version 1)
Quarter: 2021Q2

REPORT INFORMATION
  Report Type: Spontaneous
  Country: US (occurrence: US)
  Receive Date: 20210629
  Receipt Date: 20210629
  Transmission Date: 20210717
  Serious: Yes (Other)
  Sender: FDA-Public Use
  Company Number: None

PATIENT
  Age: 76 Year
  Sex: Male
  Weight: 104 kg

DRUGS (1)
  1. BRENTUXIMAB VEDOTIN [Suspect]
     Active Substance: BRENTUXIMAB VEDOTIN
     Indication: ANAPLASTIC LARGE-CELL LYMPHOMA
     Dates: start: 20210624, end: 20210624

REACTIONS (4)
  - Injection site pain [None]
  - Injection site erythema [None]
  - Injection site warmth [None]
  - Injection site swelling [None]

NARRATIVE: CASE EVENT DATE: 20210624
